FAERS Safety Report 6731116-2 (Version None)
Quarter: 2010Q2

REPORT INFORMATION
  Report Type: 
  Country: None (occurrence: None)
  Receive Date: 20100518
  Receipt Date: 20100212
  Transmission Date: 20101027
  Serious: No
  Sender: FDA-Public Use
  Company Number: A0844253A

PATIENT
  Age: 73 Year
  Sex: Male

DRUGS (2)
  1. COREG CR [Suspect]
     Indication: HYPERTENSION
     Route: 048
     Dates: start: 20100201, end: 20100208
  2. STEROIDS [Concomitant]

REACTIONS (1)
  - DIZZINESS [None]
